FAERS Safety Report 13045557 (Version 5)
Quarter: 2017Q1

REPORT INFORMATION
  Report Type: Spontaneous
  Country: SA (occurrence: SA)
  Receive Date: 20161220
  Receipt Date: 20170217
  Transmission Date: 20170428
  Serious: Yes (Other)
  Sender: FDA-Public Use
  Company Number: PHHY2016SA171787

PATIENT
  Sex: Female

DRUGS (1)
  1. GILENYA [Suspect]
     Active Substance: FINGOLIMOD HYDROCHLORIDE
     Indication: RELAPSING-REMITTING MULTIPLE SCLEROSIS
     Dosage: UNK
     Route: 065
     Dates: start: 2012, end: 2012

REACTIONS (8)
  - Fatigue [Not Recovered/Not Resolved]
  - Cognitive disorder [Not Recovered/Not Resolved]
  - Visual impairment [Unknown]
  - Lymphocyte count decreased [Unknown]
  - Sensory loss [Unknown]
  - Central nervous system lesion [Not Recovered/Not Resolved]
  - Weight decreased [Not Recovered/Not Resolved]
  - Asthenia [Unknown]
